FAERS Safety Report 14881319 (Version 1)
Quarter: 2018Q2

REPORT INFORMATION
  Report Type: Spontaneous
  Country: CL (occurrence: CL)
  Receive Date: 20180511
  Receipt Date: 20180511
  Transmission Date: 20180711
  Serious: Yes (Life-Threatening, Other)
  Sender: FDA-Public Use
  Company Number: CL-ASTRAZENECA-2018SE61411

PATIENT
  Sex: Female

DRUGS (1)
  1. IRESSA [Suspect]
     Active Substance: GEFITINIB
     Dosage: 250
     Route: 048

REACTIONS (3)
  - Metastases to central nervous system [Unknown]
  - Drug ineffective [Unknown]
  - Malignant neoplasm progression [Unknown]
